FAERS Safety Report 9208801 (Version 1)
Quarter: 2013Q2

REPORT INFORMATION
  Report Type: Spontaneous
  Country: US (occurrence: US)
  Receive Date: 20130404
  Receipt Date: 20130404
  Transmission Date: 20140414
  Serious: No
  Sender: FDA-Public Use
  Company Number: US-PFIZER INC-2013102161

PATIENT
  Age: 78 Year
  Sex: Female
  Weight: 55.78 kg

DRUGS (2)
  1. DETROL LA [Suspect]
     Indication: HYPERTONIC BLADDER
     Dosage: 4 MG, 1X/DAY
     Route: 048
  2. ESTRADIOL [Concomitant]
     Dosage: 1 MG, UNK

REACTIONS (1)
  - Drug ineffective [Unknown]
